FAERS Safety Report 9502946 (Version 2)
Quarter: 2013Q3

REPORT INFORMATION
  Report Type: Report from Study
  Country: BR (occurrence: BR)
  Receive Date: 20130906
  Receipt Date: 20130906
  Transmission Date: 20140515
  Serious: Yes (Hospitalization, Other)
  Sender: FDA-Public Use
  Company Number: PHHY2013BR068673

PATIENT
  Sex: Female

DRUGS (3)
  1. DIOVAN [Suspect]
     Indication: CARDIAC DISORDER
     Dosage: 1 DF (160/12.5/10MG) DAILY
  2. DIOVAN AMLO FIX [Suspect]
     Indication: CARDIAC DISORDER
     Dosage: 1 DF (320/10MG) DAILY
  3. DIOVAN TRIPLE [Suspect]
     Dosage: 160/10/12.5 MG, UNK

REACTIONS (4)
  - Varicose vein [Recovered/Resolved]
  - Local swelling [Recovered/Resolved]
  - Diabetes mellitus [Recovered/Resolved]
  - Pigmentation disorder [Unknown]
